FAERS Safety Report 8196102-7 (Version None)
Quarter: 2012Q1

REPORT INFORMATION
  Report Type: 
  Country: None (occurrence: None)
  Receive Date: 20120223
  Receipt Date: 20110610
  Transmission Date: 20120608
  Serious: Yes (Hospitalization)
  Sender: FDA-Public Use
  Company Number: WAES 1106USA01462

PATIENT

DRUGS (2)
  1. GEMFIBROZIL [Suspect]
  2. ZOCOR [Suspect]
     Dosage: PO
     Route: 048

REACTIONS (1)
  - ADVERSE EVENT [None]
